FAERS Safety Report 7134825-9 (Version None)
Quarter: 2010Q4

REPORT INFORMATION
  Report Type: 
  Country: None (occurrence: None)
  Receive Date: 20101203
  Receipt Date: 20101124
  Transmission Date: 20110411
  Serious: Yes (Other)
  Sender: FDA-Public Use
  Company Number: NL-JNJFOC-20101103571

PATIENT
  Age: 13 Year
  Sex: Male

DRUGS (2)
  1. CONCERTA [Suspect]
     Indication: ILL-DEFINED DISORDER
     Route: 048
  2. CONCERTA [Suspect]
     Route: 048

REACTIONS (1)
  - NIPPLE DISORDER [None]
